FAERS Safety Report 9686789 (Version 1)
Quarter: 2013Q4

REPORT INFORMATION
  Report Type: Report from Study
  Country: MX (occurrence: MX)
  Receive Date: 20131113
  Receipt Date: 20131113
  Transmission Date: 20140711
  Serious: Yes (Hospitalization, Other)
  Sender: FDA-Public Use
  Company Number: PHHY2013MX129448

PATIENT
  Age: 61 Year
  Sex: Female
  Weight: 46 kg

DRUGS (7)
  1. ACLASTA [Suspect]
     Indication: OSTEOPENIA
     Dosage: 5MG/100ML, ANNUALLY
     Route: 042
     Dates: start: 2008
  2. ACLASTA [Suspect]
     Dosage: 5MG/100ML, ANNUALLY
     Route: 042
     Dates: start: 2011
  3. PROLIA [Concomitant]
     Indication: OSTEOPOROSIS
     Dosage: 1 UKN, UNK
     Dates: start: 201310
  4. CITRACAL [Concomitant]
     Indication: MINERAL SUPPLEMENTATION
     Dosage: 2 TABLETS, DAILY
     Dates: start: 201310
  5. ANGIOTROFIN [Concomitant]
     Indication: HYPERTENSION
     Dosage: 2 TABLETS, DAILY
     Dates: start: 1998
  6. APROVEL [Concomitant]
     Indication: HYPERTENSION
     Dosage: 1 TABLET DAILY
     Dates: start: 1998
  7. ASPIRIN PROTECT [Concomitant]
     Indication: HYPERTENSION
     Dosage: 1 TABLET DAILY
     Dates: start: 1998

REACTIONS (5)
  - Osteomyelitis [Recovered/Resolved]
  - Infection [Recovered/Resolved]
  - Tooth disorder [Recovered/Resolved]
  - Hypophagia [Recovered/Resolved]
  - Weight decreased [Recovered/Resolved]
